FAERS Safety Report 8517047-6 (Version None)
Quarter: 2012Q3

REPORT INFORMATION
  Report Type: 
  Country: None (occurrence: None)
  Receive Date: 20120706
  Receipt Date: 20120627
  Transmission Date: 20120928
  Serious: Yes (Other)
  Sender: FDA-Public Use
  Company Number: ADR-2012-01142

PATIENT
  Sex: Male

DRUGS (2)
  1. LIORESAL [Suspect]
     Indication: CEREBRAL PALSY
     Dosage: 1100 MCG/MDAY
  2. LIORESAL [Suspect]
     Indication: MUSCLE SPASTICITY
     Dosage: 1100 MCG/MDAY

REACTIONS (5)
  - IMPLANT SITE EFFUSION [None]
  - THERAPEUTIC RESPONSE DECREASED [None]
  - DEVICE LEAKAGE [None]
  - FOREIGN BODY REACTION [None]
  - IMPLANT SITE FIBROSIS [None]
